FAERS Safety Report 9944222 (Version 2)
Quarter: 2014Q1

REPORT INFORMATION
  Report Type: Report from Study
  Country: AR (occurrence: AR)
  Receive Date: 20140303
  Receipt Date: 20140306
  Transmission Date: 20141002
  Serious: Yes (Other)
  Sender: FDA-Public Use
  Company Number: PHHY2014AR025535

PATIENT
  Sex: Female

DRUGS (1)
  1. DIOVAN D [Suspect]
     Indication: HYPERTENSION
     Dosage: 1 DF(320/12.5 MG), DAILY
     Route: 048

REACTIONS (2)
  - Nephrolithiasis [Recovering/Resolving]
  - Haemorrhage [Recovered/Resolved]
